FAERS Safety Report 10639792 (Version 1)
Quarter: 2014Q4

REPORT INFORMATION
  Report Type: Spontaneous
  Country: US (occurrence: None)
  Receive Date: 20141205
  Receipt Date: 20141205
  Transmission Date: 20150529
  Serious: No
  Sender: FDA-Public Use
  Company Number: None

PATIENT
  Age: 19 Year
  Sex: Female
  Weight: 59.88 kg

DRUGS (1)
  1. MONISTAT [Suspect]
     Active Substance: MICONAZOLE NITRATE
     Indication: FUNGAL INFECTION
     Dates: start: 20141203, end: 20141203

REACTIONS (3)
  - Vulvovaginal pruritus [None]
  - Vulvovaginal burning sensation [None]
  - Application site pain [None]

NARRATIVE: CASE EVENT DATE: 20141203
